FAERS Safety Report 15661242 (Version 2)
Quarter: 2020Q3

REPORT INFORMATION
  Report Type: Spontaneous
  Country: US (occurrence: US)
  Receive Date: 20181127
  Receipt Date: 20200820
  Transmission Date: 20201102
  Serious: Yes (Other)
  Sender: FDA-Public Use
  Company Number: US-GILEAD-2018-0376133

PATIENT
  Age: 54 Year
  Sex: Female
  Weight: 95 kg

DRUGS (25)
  1. VITAMIN D [VITAMIN D NOS] [Concomitant]
     Active Substance: VITAMIN D NOS
  2. TRUVADA [Suspect]
     Active Substance: EMTRICITABINE\TENOFOVIR DISOPROXIL FUMARATE
     Indication: HIV INFECTION
     Dosage: UNK
     Route: 048
     Dates: start: 20120113, end: 20120401
  3. GENVOYA [Concomitant]
     Active Substance: COBICISTAT\ELVITEGRAVIR\EMTRICITABINE\TENOFOVIR ALAFENAMIDE FUMARATE
  4. PROAIR HFA [Concomitant]
     Active Substance: ALBUTEROL SULFATE
  5. LORTAB [LORATADINE] [Concomitant]
     Active Substance: LORATADINE
  6. NEURONTIN [Concomitant]
     Active Substance: GABAPENTIN
  7. PAXIL [Concomitant]
     Active Substance: PAROXETINE HYDROCHLORIDE
  8. SERTRALINE [Concomitant]
     Active Substance: SERTRALINE HYDROCHLORIDE
  9. ALBUTEROL SULFATE. [Concomitant]
     Active Substance: ALBUTEROL SULFATE
  10. DIOVAN [Concomitant]
     Active Substance: VALSARTAN
  11. CLARITINE [Concomitant]
     Active Substance: LORATADINE
  12. LOSARTAN. [Concomitant]
     Active Substance: LOSARTAN
  13. ROSUVASTATIN. [Concomitant]
     Active Substance: ROSUVASTATIN
  14. SYMBICORT [Concomitant]
     Active Substance: BUDESONIDE\FORMOTEROL FUMARATE DIHYDRATE
  15. MEDROL [METHYLPREDNISOLONE ACETATE] [Concomitant]
     Active Substance: METHYLPREDNISOLONE ACETATE
  16. DOXEPIN [Concomitant]
     Active Substance: DOXEPIN
  17. VALSARTAN. [Concomitant]
     Active Substance: VALSARTAN
  18. LYRICA [Concomitant]
     Active Substance: PREGABALIN
  19. STRIBILD [Suspect]
     Active Substance: COBICISTAT\ELVITEGRAVIR\EMTRICITABINE\TENOFOVIR DISOPROXIL FUMARATE
     Indication: HIV INFECTION
     Dosage: UNK
     Route: 048
     Dates: start: 20140314, end: 20160211
  20. LASIX [Concomitant]
     Active Substance: FUROSEMIDE
  21. FLEXERIL [CEFIXIME] [Concomitant]
     Active Substance: CEFIXIME
  22. NORVIR [Concomitant]
     Active Substance: RITONAVIR
  23. AMBIEN [Concomitant]
     Active Substance: ZOLPIDEM TARTRATE
  24. RANITIDINE. [Concomitant]
     Active Substance: RANITIDINE
  25. JANUVIA [Concomitant]
     Active Substance: SITAGLIPTIN PHOSPHATE

REACTIONS (16)
  - Illness [Unknown]
  - Pain [Not Recovered/Not Resolved]
  - Anhedonia [Not Recovered/Not Resolved]
  - Economic problem [Unknown]
  - Osteopenia [Not Recovered/Not Resolved]
  - Dysstasia [Unknown]
  - Bone density decreased [Unknown]
  - Emotional distress [Not Recovered/Not Resolved]
  - Osteoporosis [Not Recovered/Not Resolved]
  - Anxiety [Not Recovered/Not Resolved]
  - Decreased appetite [Unknown]
  - Vomiting [Unknown]
  - Pneumonia [Unknown]
  - Feeding disorder [Unknown]
  - Gait disturbance [Unknown]
  - Depression [Unknown]

NARRATIVE: CASE EVENT DATE: 201307
